FAERS Safety Report 7077197-0 (Version None)
Quarter: 2010Q4

REPORT INFORMATION
  Report Type: 
  Country: None (occurrence: None)
  Receive Date: 20101101
  Receipt Date: 20101024
  Transmission Date: 20110411
  Serious: Yes (Other)
  Sender: FDA-Public Use
  Company Number: B0682131A

PATIENT
  Age: 5 Year
  Sex: Male

DRUGS (2)
  1. AMOXIL [Suspect]
     Indication: PRODUCT USED FOR UNKNOWN INDICATION
     Route: 065
  2. EYE DROPS UNKNOWN [Concomitant]

REACTIONS (1)
  - BLINDNESS [None]
